FAERS Safety Report 10413737 (Version 2)
Quarter: 2014Q3

REPORT INFORMATION
  Report Type: Spontaneous
  Country: US (occurrence: US)
  Receive Date: 20140827
  Receipt Date: 20140827
  Transmission Date: 20150326
  Serious: Yes (Death, Hospitalization, Other)
  Sender: FDA-Public Use
  Company Number: US-009507513-2008-178179-NL

PATIENT
  Sex: Female
  Weight: 106.14 kg

DRUGS (1)
  1. NUVARING [Suspect]
     Active Substance: ETHINYL ESTRADIOL\ETONOGESTREL
     Indication: CONTRACEPTION
     Dosage: 1 DF, UNK
     Route: 067
     Dates: start: 20060628, end: 200609

REACTIONS (13)
  - Pulmonary embolism [Fatal]
  - Respiratory arrest [Unknown]
  - Anxiety [Unknown]
  - Road traffic accident [Unknown]
  - Transverse sinus thrombosis [Recovered/Resolved]
  - Deep vein thrombosis [Unknown]
  - Weight increased [Recovered/Resolved]
  - Muscle spasms [Unknown]
  - Convulsion [Unknown]
  - Hypercoagulation [Unknown]
  - Cerebrovascular accident [Unknown]
  - Cardiac arrest [Unknown]
  - Acute myocardial infarction [Unknown]

NARRATIVE: CASE EVENT DATE: 20060911
